FAERS Safety Report 6891750-6 (Version None)
Quarter: 2010Q3

REPORT INFORMATION
  Report Type: 
  Country: None (occurrence: None)
  Receive Date: 20100731
  Receipt Date: 20071001
  Transmission Date: 20110219
  Serious: No
  Sender: FDA-Public Use
  Company Number: US-PFIZER INC-2007082273

PATIENT
  Sex: Male
  Weight: 79.5 kg

DRUGS (3)
  1. NORVASC [Suspect]
     Indication: HYPERTENSION
     Route: 048
     Dates: start: 20070923
  2. AMBIEN [Concomitant]
  3. MAXALT [Concomitant]

REACTIONS (2)
  - HEADACHE [None]
  - MIGRAINE [None]
